FAERS Safety Report 17754382 (Version 1)
Quarter: 2020Q2

REPORT INFORMATION
  Report Type: Spontaneous
  Country: US (occurrence: US)
  Receive Date: 20200507
  Receipt Date: 20200507
  Transmission Date: 20200714
  Serious: Yes (Other)
  Sender: FDA-Public Use
  Company Number: US-ADVANZ PHARMA-202004004842

PATIENT

DRUGS (2)
  1. XELJANZ [Suspect]
     Active Substance: TOFACITINIB CITRATE
     Indication: RHEUMATOID ARTHRITIS
     Dosage: 5 MG, BID
     Route: 048
     Dates: start: 20200226
  2. HYDROXYCHLOROQUINE [Suspect]
     Active Substance: HYDROXYCHLOROQUINE
     Dosage: UNK

REACTIONS (10)
  - Blood thyroid stimulating hormone decreased [Unknown]
  - Disturbance in attention [Unknown]
  - Fatigue [Unknown]
  - Inflammation [Unknown]
  - Weight increased [Unknown]
  - Malaise [Unknown]
  - Dyspnoea [Unknown]
  - Heart rate increased [Unknown]
  - Depersonalisation/derealisation disorder [Unknown]
  - Somnolence [Unknown]
